APPROVED DRUG PRODUCT: AMIKIN IN SODIUM CHLORIDE 0.9% IN PLASTIC CONTAINER
Active Ingredient: AMIKACIN SULFATE
Strength: EQ 10MG BASE/ML
Dosage Form/Route: INJECTABLE;INJECTION
Application: N050618 | Product #001
Applicant: APOTHECON INC DIV BRISTOL MYERS SQUIBB
Approved: Nov 30, 1987 | RLD: No | RS: No | Type: DISCN